FAERS Safety Report 20218901 (Version 1)
Quarter: 2021Q4

REPORT INFORMATION
  Report Type: Spontaneous
  Country: US (occurrence: US)
  Receive Date: 20211222
  Receipt Date: 20211222
  Transmission Date: 20220304
  Serious: No
  Sender: FDA-Public Use
  Company Number: US-BioHaven Pharmaceuticals-2021BHV000848

PATIENT
  Age: 67 Year
  Sex: Female

DRUGS (1)
  1. NURTEC ODT [Suspect]
     Active Substance: RIMEGEPANT SULFATE
     Indication: Product used for unknown indication
     Dosage: PATIENT HAD NURTEC PRESCRIBED TO HER ON 10-SEP-2021, AND HAD IT FILLED ON 16-SEP-2021
     Route: 048

REACTIONS (1)
  - Drug ineffective [Unknown]
